FAERS Safety Report 22186797 (Version 1)
Quarter: 2023Q2

REPORT INFORMATION
  Report Type: Spontaneous
  Country: US (occurrence: None)
  Receive Date: 20230407
  Receipt Date: 20230407
  Transmission Date: 20230722
  Serious: Yes (Hospitalization, Other)
  Sender: FDA-Public Use
  Company Number: None

PATIENT
  Age: 51 Year
  Sex: Female

DRUGS (1)
  1. TROKENDI XR [Suspect]
     Active Substance: TOPIRAMATE
     Indication: Epilepsy

REACTIONS (9)
  - Anaemia [None]
  - Renal failure [None]
  - Insomnia [None]
  - Heavy menstrual bleeding [None]
  - Blepharospasm [None]
  - Weight decreased [None]
  - Paraesthesia [None]
  - Oral discomfort [None]
  - Blood urine present [None]
